FAERS Safety Report 4668671-2 (Version None)
Quarter: 2005Q2

REPORT INFORMATION
  Report Type: 
  Country: None (occurrence: None)
  Receive Date: 20050523
  Receipt Date: 20050511
  Transmission Date: 20051028
  Serious: Yes (Hospitalization, Other)
  Sender: FDA-Public Use
  Company Number: US-NOVOPROD-244098

PATIENT
  Age: 68 Year
  Sex: Female

DRUGS (1)
  1. NOVOLIN N INNOLET [Suspect]
     Indication: INSULIN-REQUIRING TYPE II DIABETES MELLITUS
     Dosage: 30 IU, QD
     Route: 058
     Dates: start: 20041019, end: 20041129

REACTIONS (6)
  - BLOOD GLUCOSE INCREASED [None]
  - INFECTION [None]
  - NAUSEA [None]
  - TOE AMPUTATION [None]
  - VISION BLURRED [None]
  - VOMITING [None]
